FAERS Safety Report 24301634 (Version 1)
Quarter: 2024Q3

REPORT INFORMATION
  Report Type: Spontaneous
  Country: US (occurrence: US)
  Receive Date: 20240910
  Receipt Date: 20240910
  Transmission Date: 20241017
  Serious: Yes (Other)
  Sender: TEVA
  Company Number: US-TEVA-VS-3239727

PATIENT
  Sex: Male

DRUGS (1)
  1. FLUDROCORTISONE [Suspect]
     Active Substance: FLUDROCORTISONE
     Indication: Hypotension
     Route: 048

REACTIONS (3)
  - Parkinson^s disease [Unknown]
  - Drug ineffective [Unknown]
  - Off label use [Unknown]
